FAERS Safety Report 18195700 (Version 2)
Quarter: 2020Q3

REPORT INFORMATION
  Report Type: Spontaneous
  Country: PL (occurrence: PL)
  Receive Date: 20200826
  Receipt Date: 20200925
  Transmission Date: 20201103
  Serious: Yes (Other)
  Sender: FDA-Public Use
  Company Number: PL-ROCHE-2665756

PATIENT
  Age: 69 Year
  Sex: Male
  Weight: 71 kg

DRUGS (3)
  1. ESBRIET [Suspect]
     Active Substance: PIRFENIDONE
     Indication: IDIOPATHIC PULMONARY FIBROSIS
     Route: 048
     Dates: start: 20191218, end: 20200717
  2. PRAMOLAN [Concomitant]
     Active Substance: OPIPRAMOL HYDROCHLORIDE
     Dosage: 1 TABLET?OCCASIONALLY
  3. PROSTAMOL [Concomitant]
     Dosage: 1 X 1 TABLET/ DAY?OCCASIONALLY

REACTIONS (2)
  - Urticaria [Recovered/Resolved]
  - Rash [Recovered/Resolved]

NARRATIVE: CASE EVENT DATE: 20200707
